FAERS Safety Report 9408628 (Version 2)
Quarter: 2013Q3

REPORT INFORMATION
  Report Type: Spontaneous
  Country: US (occurrence: US)
  Receive Date: 20130718
  Receipt Date: 20130813
  Transmission Date: 20140515
  Serious: No
  Sender: FDA-Public Use
  Company Number: US-PFIZER INC-2013208776

PATIENT
  Age: 75 Year
  Sex: Female

DRUGS (12)
  1. INLYTA [Suspect]
     Indication: RENAL CELL CARCINOMA
     Dosage: 5 MG, 2X/DAY
     Route: 048
     Dates: start: 20130319, end: 20130325
  2. INLYTA [Suspect]
     Indication: METASTASES TO BONE
     Dosage: 5 MG, 1X/DAY
     Route: 048
     Dates: start: 20130420
  3. ARANESP [Concomitant]
     Dosage: 150MCG/0.75ML SDV
  4. NORVASC [Concomitant]
     Dosage: UNK
  5. CLARITIN [Concomitant]
     Dosage: UNK
  6. OXYCODONE HYDROCHLORIDE [Concomitant]
     Dosage: UNK
  7. GABAPENTIN [Concomitant]
     Dosage: UNK
  8. LOSARTAN POTASSIUM [Concomitant]
     Dosage: UNK
  9. WARFARIN SODIUM [Concomitant]
     Dosage: UNK
  10. METHADONE HYDROCHLORIDE [Concomitant]
     Dosage: UNK
  11. XGEVA [Concomitant]
     Dosage: 120MG/1.7ML SDV
  12. NEXIUM [Concomitant]
     Dosage: UNK

REACTIONS (1)
  - Pain in jaw [Recovering/Resolving]
